FAERS Safety Report 4674793-2 (Version None)
Quarter: 2005Q2

REPORT INFORMATION
  Report Type: 
  Country: None (occurrence: None)
  Receive Date: 20050525
  Receipt Date: 20050519
  Transmission Date: 20051028
  Serious: Yes (Hospitalization)
  Sender: FDA-Public Use
  Company Number: 231405K05USA

PATIENT
  Age: 52 Year
  Sex: Female

DRUGS (1)
  1. REBIF [Suspect]
     Indication: MULTIPLE SCLEROSIS
     Dosage: 44 MCG, 3 IN 1 WEEKS, NOT
     Dates: start: 20040629, end: 20040801

REACTIONS (6)
  - CONDITION AGGRAVATED [None]
  - CONVULSION [None]
  - ELECTROENCEPHALOGRAM ABNORMAL [None]
  - INJECTION SITE REACTION [None]
  - INSOMNIA [None]
  - MULTIPLE SCLEROSIS [None]
